FAERS Safety Report 12093702 (Version 1)
Quarter: 2016Q1

REPORT INFORMATION
  Report Type: Report from Study
  Country: CA (occurrence: CA)
  Receive Date: 20160219
  Receipt Date: 20160219
  Transmission Date: 20160526
  Serious: Yes (Other)
  Sender: FDA-Public Use
  Company Number: CA-PFIZER INC-2016087631

PATIENT
  Age: 57 Year
  Sex: Female

DRUGS (9)
  1. ASAPHEN [Concomitant]
     Active Substance: ASPIRIN
  2. RASILEZ [Concomitant]
     Active Substance: ALISKIREN
  3. PLAQUENIL [Concomitant]
     Active Substance: HYDROXYCHLOROQUINE SULFATE
  4. LIPITOR [Suspect]
     Active Substance: ATORVASTATIN CALCIUM
     Indication: PRODUCT USED FOR UNKNOWN INDICATION
     Route: 065
  5. APO-TAMOX [Concomitant]
     Active Substance: TAMOXIFEN
  6. APO-OMEPRAZOLE [Concomitant]
     Active Substance: OMEPRAZOLE
  7. METOPROLOL. [Concomitant]
     Active Substance: METOPROLOL
  8. DIOVAN HCT [Suspect]
     Active Substance: HYDROCHLOROTHIAZIDE\VALSARTAN
     Indication: PRODUCT USED FOR UNKNOWN INDICATION
     Route: 065
  9. SIMPONI [Suspect]
     Active Substance: GOLIMUMAB
     Indication: RHEUMATOID ARTHRITIS
     Dosage: 50.0 MG, ONCE MONTHLY
     Route: 058

REACTIONS (1)
  - Hypokalaemia [Not Recovered/Not Resolved]
